FAERS Safety Report 17237311 (Version 5)
Quarter: 2020Q2

REPORT INFORMATION
  Report Type: Spontaneous
  Country: US (occurrence: US)
  Receive Date: 20200106
  Receipt Date: 20200629
  Transmission Date: 20200713
  Serious: Yes (Other)
  Sender: FDA-Public Use
  Company Number: US-PFIZER INC-2020003861

PATIENT
  Age: 60 Year
  Sex: Female

DRUGS (1)
  1. XELJANZ [Suspect]
     Active Substance: TOFACITINIB CITRATE
     Indication: RHEUMATOID ARTHRITIS
     Dosage: 5 MG, 2X/DAY
     Route: 048
     Dates: start: 2016

REACTIONS (5)
  - Foot fracture [Unknown]
  - Pain [Unknown]
  - Peripheral swelling [Unknown]
  - Drug ineffective [Unknown]
  - Sensitivity to weather change [Unknown]
